FAERS Safety Report 15286229 (Version 1)
Quarter: 2018Q3

REPORT INFORMATION
  Report Type: Spontaneous
  Country: FR (occurrence: FR)
  Receive Date: 20180816
  Receipt Date: 20180816
  Transmission Date: 20181010
  Serious: Yes (Other)
  Sender: FDA-Public Use
  Company Number: FR-BRISTOL-MYERS SQUIBB COMPANY-BMS-2018-076469

PATIENT
  Age: 80 Year
  Sex: Female

DRUGS (1)
  1. NIVOLUMAB [Suspect]
     Active Substance: NIVOLUMAB
     Indication: B-CELL LYMPHOMA
     Route: 065

REACTIONS (4)
  - Product use in unapproved indication [Unknown]
  - Hepatitis [Unknown]
  - Subacute cutaneous lupus erythematosus [Recovered/Resolved]
  - Malignant neoplasm progression [Unknown]
